FAERS Safety Report 11183028 (Version 1)
Quarter: 2015Q2

REPORT INFORMATION
  Report Type: Spontaneous
  Country: US (occurrence: US)
  Receive Date: 20150611
  Receipt Date: 20150611
  Transmission Date: 20150821
  Serious: Yes (Death)
  Sender: FDA-Public Use
  Company Number: US-MYLANLABS-2015M1019188

PATIENT

DRUGS (3)
  1. VANCOMYCIN [Suspect]
     Active Substance: VANCOMYCIN
     Dosage: 1.5 G, QD
     Route: 042
  2. PIPERACILLIN/TAZOBACTAM [Suspect]
     Active Substance: PIPERACILLIN SODIUM\TAZOBACTAM SODIUM
     Dosage: 2.25 G, Q6H
     Route: 042
  3. CLINDAMYCIN [Suspect]
     Active Substance: CLINDAMYCIN\CLINDAMYCIN PHOSPHATE
     Dosage: 600 MG, Q8H
     Route: 042

REACTIONS (14)
  - Blood creatinine increased [None]
  - Blood creatine phosphokinase increased [None]
  - Culture urine positive [None]
  - Staphylococcal infection [None]
  - Necrotising fasciitis [Fatal]
  - Blood lactic acid increased [None]
  - Blood albumin decreased [None]
  - Drug ineffective [Fatal]
  - Hypotension [None]
  - Blood urea increased [None]
  - Blood bicarbonate increased [None]
  - Ventricular tachycardia [None]
  - Blood bilirubin increased [None]
  - Multi-organ failure [None]
